FAERS Safety Report 9240286 (Version 2)
Quarter: 2013Q2

REPORT INFORMATION
  Report Type: Spontaneous
  Country: US (occurrence: None)
  Receive Date: 20130417
  Receipt Date: 20130531
  Transmission Date: 20140414
  Serious: Yes (Other)
  Sender: FDA-Public Use
  Company Number: JPI-P-031035

PATIENT
  Age: 62 Year
  Sex: Male
  Weight: 74.84 kg

DRUGS (8)
  1. XYREM (500 MILLIGRAM/MILLILITERS, SOLUTION) (SODIUM OXYBATE) [Suspect]
     Indication: FIBROMYALGIA
     Dosage: 6 GM (3 GM, 2 IN 1 D), ORAL
     Dates: start: 20080815
  2. AMBIEN [Suspect]
     Indication: SLEEP DISORDER
     Route: 048
     Dates: start: 20130325
  3. COREG (CARVEDILOL) [Concomitant]
  4. PLAVIX (CLOPIDOGREL BISULFATE) [Concomitant]
  5. LEVOTHYROXINE [Concomitant]
  6. CRESTOR (ROSUVASTATIN CALCIUM) [Concomitant]
  7. NIACIN [Concomitant]
  8. PANTOPRAZOLE [Concomitant]

REACTIONS (10)
  - Enuresis [None]
  - Amnesia [None]
  - Psychomotor skills impaired [None]
  - Fatigue [None]
  - Sleep disorder [None]
  - Gait disturbance [None]
  - Tremor [None]
  - Parkinson^s disease [None]
  - Head injury [None]
  - Road traffic accident [None]
